FAERS Safety Report 19374121 (Version 1)
Quarter: 2021Q2

REPORT INFORMATION
  Report Type: Spontaneous
  Country: US (occurrence: US)
  Receive Date: 20210603
  Receipt Date: 20210603
  Transmission Date: 20210717
  Serious: Yes (Other)
  Sender: FDA-Public Use
  Company Number: US-GILEAD-2021-0534139

PATIENT
  Age: 38 Year
  Sex: Male

DRUGS (3)
  1. REMDESIVIR. [Concomitant]
     Active Substance: REMDESIVIR
     Dosage: HOSPITAL DAY 2?6
  2. TRIMETHOPRIM SULFAMETHOXAZOLE [Concomitant]
     Active Substance: SULFAMETHOXAZOLE\TRIMETHOPRIM
  3. BIKTARVY [Suspect]
     Active Substance: BICTEGRAVIR SODIUM\EMTRICITABINE\TENOFOVIR ALAFENAMIDE FUMARATE
     Indication: HIV INFECTION
     Dosage: UNK
     Route: 065

REACTIONS (3)
  - Pneumonia cytomegaloviral [Unknown]
  - Pneumocystis jirovecii pneumonia [Unknown]
  - Immune reconstitution inflammatory syndrome [Unknown]
